APPROVED DRUG PRODUCT: NEXESTA FE
Active Ingredient: ETHINYL ESTRADIOL; NORETHINDRONE
Strength: 0.035MG;0.4MG
Dosage Form/Route: TABLET;ORAL
Application: A207535 | Product #001 | TE Code: AB
Applicant: AUROBINDO PHARMA LTD
Approved: Feb 2, 2017 | RLD: No | RS: No | Type: RX